FAERS Safety Report 8519185-0 (Version None)
Quarter: 2012Q3

REPORT INFORMATION
  Report Type: 
  Country: None (occurrence: None)
  Receive Date: 20120718
  Receipt Date: 20120709
  Transmission Date: 20120928
  Serious: Yes (Other)
  Sender: FDA-Public Use
  Company Number: US-ABBOTT-12P-163-0954609-00

PATIENT
  Age: 53 Year
  Sex: Female

DRUGS (9)
  1. ESTRADIOL [Concomitant]
     Indication: OESTROGEN REPLACEMENT THERAPY
  2. BENAZEPRIL HYDROCHLORIDE [Concomitant]
     Indication: HYPERTENSION
     Route: 048
  3. VICODIN [Concomitant]
     Indication: PAIN
     Dosage: UP TO FOUR TIMES DAILY
     Route: 048
  4. HUMIRA [Suspect]
     Dosage: PATIENT TAKES EVERY 7 TO 9 DAYS
     Dates: start: 20120101
  5. XANAX [Concomitant]
     Indication: INSOMNIA
  6. AMLODIPINE [Concomitant]
     Indication: HYPERTENSION
     Route: 048
  7. ELAVIL [Concomitant]
     Indication: NERVOUSNESS
     Dosage: AT BEDTIME
     Route: 048
  8. HUMIRA [Suspect]
     Indication: RHEUMATOID ARTHRITIS
     Dosage: PATIENT TAKES EVERY 7 TO 9 DAYS
     Dates: end: 20120201
  9. PILOCARPINE [Concomitant]
     Indication: DRY MOUTH
     Route: 048

REACTIONS (6)
  - JOINT SWELLING [None]
  - INAPPROPRIATE SCHEDULE OF DRUG ADMINISTRATION [None]
  - TOOTH DISORDER [None]
  - OEDEMA PERIPHERAL [None]
  - RHEUMATOID ARTHRITIS [None]
  - TOOTH INFECTION [None]
